FAERS Safety Report 5484574-8 (Version None)
Quarter: 2007Q4

REPORT INFORMATION
  Report Type: 
  Country: None (occurrence: None)
  Receive Date: 20071012
  Receipt Date: 20071002
  Transmission Date: 20080405
  Serious: Yes (Other)
  Sender: FDA-Public Use
  Company Number: US-PFIZER INC-2007062190

PATIENT
  Sex: Male
  Weight: 66.2 kg

DRUGS (8)
  1. SUTENT [Suspect]
     Indication: METASTATIC RENAL CELL CARCINOMA
     Dates: start: 20070614, end: 20070628
  2. VALIUM [Concomitant]
     Route: 048
  3. NITROGLYCERIN [Concomitant]
     Route: 048
  4. ACETYLSALICYLIC ACID [Concomitant]
     Route: 048
  5. METOPROLOL [Concomitant]
     Route: 048
  6. ZETIA [Concomitant]
     Route: 048
  7. LOVASTATIN [Concomitant]
     Route: 048
  8. LISINOPRIL [Concomitant]
     Route: 048

REACTIONS (1)
  - PANCYTOPENIA [None]
